FAERS Safety Report 8831049 (Version 4)
Quarter: 2012Q4

REPORT INFORMATION
  Report Type: 
  Country: US (occurrence: US)
  Receive Date: 20121009
  Receipt Date: 20121129
  Transmission Date: 20130627
  Serious: Yes (Death, Hospitalization, Other)
  Sender: FDA-Public Use
  Company Number: US-PFIZER INC-2012247458

PATIENT
  Age: 87 Year
  Sex: Female

DRUGS (8)
  1. SUTENT [Suspect]
     Indication: KIDNEY CANCER
     Dosage: 25 mg, Daily, 28days on 14 day off
     Route: 048
     Dates: start: 201105, end: 20121004
  2. KLOR-CON [Concomitant]
     Dosage: UNK
  3. ASPIRIN [Concomitant]
     Dosage: UNK
  4. ALLOPURINOL [Concomitant]
     Dosage: UNK
  5. NABUMETONE [Concomitant]
     Dosage: UNK
  6. FUROSEMIDE [Concomitant]
     Dosage: UNK
  7. GLYBURIDE [Concomitant]
     Dosage: UNK
  8. METOLAZONE [Concomitant]
     Dosage: UNK

REACTIONS (6)
  - Disease progression [Fatal]
  - Renal cancer [Fatal]
  - Renal failure acute [Not Recovered/Not Resolved]
  - Fluid retention [Not Recovered/Not Resolved]
  - Dyspnoea [Not Recovered/Not Resolved]
  - Malaise [Unknown]
